FAERS Safety Report 6071840-0 (Version None)
Quarter: 2009Q1

REPORT INFORMATION
  Report Type: 
  Country: None (occurrence: None)
  Receive Date: 20090210
  Receipt Date: 20090205
  Transmission Date: 20090719
  Serious: Yes (Death, Hospitalization)
  Sender: FDA-Public Use
  Company Number: PHHY2009MX03952

PATIENT
  Sex: Female

DRUGS (5)
  1. DIOVAN [Suspect]
     Indication: HYPERTENSION
     Dosage: 160 MG, QD
     Route: 048
     Dates: start: 20070901, end: 20090102
  2. NORVASC [Concomitant]
     Indication: HYPERTENSION
  3. ELANTAN ^KNOLL^ [Concomitant]
     Indication: CARDIOMEGALY
  4. LANOXIN [Concomitant]
     Indication: CARDIOMEGALY
  5. GLYCERYL IODIDE [Concomitant]
     Indication: CARDIOMEGALY

REACTIONS (5)
  - ANGINA PECTORIS [None]
  - BACK PAIN [None]
  - CHEST PAIN [None]
  - MYOCARDIAL INFARCTION [None]
  - PULMONARY OEDEMA [None]
